FAERS Safety Report 19877540 (Version 1)
Quarter: 2021Q3

REPORT INFORMATION
  Report Type: Spontaneous
  Country: CA (occurrence: CA)
  Receive Date: 20210924
  Receipt Date: 20210924
  Transmission Date: 20211014
  Serious: Yes (Hospitalization)
  Sender: FDA-Public Use
  Company Number: CA-ROCHE-2916250

PATIENT
  Age: 73 Year
  Sex: Female

DRUGS (19)
  1. RITUXIMAB. [Suspect]
     Active Substance: RITUXIMAB
     Indication: RHEUMATOID ARTHRITIS
     Route: 065
  2. DEXILANT [Concomitant]
     Active Substance: DEXLANSOPRAZOLE
  3. CITALOPRAM [Concomitant]
     Active Substance: CITALOPRAM HYDROBROMIDE
  4. IRBESARTAN. [Concomitant]
     Active Substance: IRBESARTAN
  5. FUCIDIN [Concomitant]
     Active Substance: FUSIDATE SODIUM
  6. RITUXIMAB. [Suspect]
     Active Substance: RITUXIMAB
     Indication: PULMONARY FIBROSIS
  7. METHYLPREDNISOLONE. [Concomitant]
     Active Substance: METHYLPREDNISOLONE
  8. SALBUTAMOL [Concomitant]
     Active Substance: ALBUTEROL
  9. RITUXIMAB. [Suspect]
     Active Substance: RITUXIMAB
     Indication: PULMONARY FIBROSIS
  10. ESTRACE [Concomitant]
     Active Substance: ESTRADIOL
  11. TYLENOL [Concomitant]
     Active Substance: ACETAMINOPHEN
  12. BENADRYL [Concomitant]
     Active Substance: DIPHENHYDRAMINE HYDROCHLORIDE
  13. ERGOCALCIFEROL. [Concomitant]
     Active Substance: ERGOCALCIFEROL
  14. MOXIFLOXACIN HYDROCHLORIDE. [Concomitant]
     Active Substance: MOXIFLOXACIN HYDROCHLORIDE
  15. PREDNISONE. [Concomitant]
     Active Substance: PREDNISONE
  16. RITUXIMAB. [Suspect]
     Active Substance: RITUXIMAB
     Indication: RHEUMATOID ARTHRITIS
     Route: 042
  17. CYCLOBENZAPRINE. [Concomitant]
     Active Substance: CYCLOBENZAPRINE
  18. SODIUM SUCCINATE [Concomitant]
     Active Substance: SODIUM SUCCINATE HEXAHYDRATE
  19. XELJANZ [Concomitant]
     Active Substance: TOFACITINIB CITRATE

REACTIONS (7)
  - Heart rate increased [Unknown]
  - Pneumonia [Unknown]
  - Blood pressure systolic increased [Unknown]
  - Oxygen saturation decreased [Unknown]
  - Intentional product use issue [Unknown]
  - Blood pressure systolic abnormal [Unknown]
  - Heart valve incompetence [Unknown]
